FAERS Safety Report 20302578 (Version 1)
Quarter: 2022Q1

REPORT INFORMATION
  Report Type: Spontaneous
  Country: US (occurrence: US)
  Receive Date: 20220106
  Receipt Date: 20220106
  Transmission Date: 20220424
  Serious: No
  Sender: FDA-Public Use
  Company Number: US-JNJFOC-20211266518

PATIENT
  Age: 59 Year
  Sex: Male
  Weight: 121 kg

DRUGS (22)
  1. DARZALEX FASPRO [Suspect]
     Active Substance: DARATUMUMAB\HYALURONIDASE-FIHJ
     Indication: Plasma cell myeloma
     Route: 065
     Dates: start: 20211217
  2. TYLENOL [Concomitant]
     Active Substance: ACETAMINOPHEN
  3. LASIX [Concomitant]
     Active Substance: FUROSEMIDE
     Dosage: QD
  4. KCL [Concomitant]
     Active Substance: POTASSIUM CHLORIDE
     Dosage: 20 MEQ 1 DAILY
  5. COREG [Concomitant]
     Active Substance: CARVEDILOL
     Dosage: 25MG BID
  6. LOPERAMIDE [Concomitant]
     Active Substance: LOPERAMIDE
  7. CLARITIN [Concomitant]
     Active Substance: LORATADINE
     Dosage: QD
  8. ASPIRIN [Concomitant]
     Active Substance: ASPIRIN
     Dosage: CHEWABLE ASPIRIN 81 QD
  9. LIPITOR [Concomitant]
     Active Substance: ATORVASTATIN CALCIUM
     Dosage: 80 MG QD
  10. DULCOLAX (BISACODYL) [Concomitant]
     Active Substance: BISACODYL
     Dosage: 5MG PRN QD
  11. VELCADE [Concomitant]
     Active Substance: BORTEZOMIB
     Dosage: QW
  12. PLAVIX [Concomitant]
     Active Substance: CLOPIDOGREL BISULFATE
     Dosage: QD
  13. XGEVA [Concomitant]
     Active Substance: DENOSUMAB
     Dosage: Q4W
  14. DECADRON [Concomitant]
     Active Substance: DEXAMETHASONE
     Dosage: 8MG EVEY MONDAY AND?FRIDAY
  15. ZETIA [Concomitant]
     Active Substance: EZETIMIBE
     Dosage: 10MG 1 QD
  16. DILAUDID [Concomitant]
     Active Substance: HYDROMORPHONE HYDROCHLORIDE
     Dosage: 2MG Q6H PRN
  17. LISINOPRIL [Concomitant]
     Active Substance: LISINOPRIL
     Dosage: 2.5 PRN
  18. ONDANSETRON [Concomitant]
     Active Substance: ONDANSETRON
     Dosage: 4MG PRN?Q6H
  19. PROTONIX [Concomitant]
     Active Substance: PANTOPRAZOLE SODIUM
     Dosage: 40MG QD
  20. TORSEMIDE [Concomitant]
     Active Substance: TORSEMIDE
     Dosage: 20MG QD
  21. BENADRYL [Concomitant]
     Active Substance: DIPHENHYDRAMINE HYDROCHLORIDE
     Dosage: IVPB 20MG
  22. DECADRON [Concomitant]
     Active Substance: DEXAMETHASONE
     Dosage: IVPB 20MG

REACTIONS (2)
  - Blood pressure systolic decreased [Unknown]
  - Anxiety [Unknown]
